FAERS Safety Report 7500923-0 (Version None)
Quarter: 2011Q2

REPORT INFORMATION
  Report Type: 
  Country: None (occurrence: None)
  Receive Date: 20110524
  Receipt Date: 20110517
  Transmission Date: 20111010
  Serious: Yes (Other)
  Sender: FDA-Public Use
  Company Number: US-US-EMD SERONO, INC.-7060404

PATIENT
  Sex: Female

DRUGS (3)
  1. NAPROXEN (ALEVE) [Concomitant]
     Indication: PREMEDICATION
  2. REBIF [Suspect]
     Indication: MULTIPLE SCLEROSIS
     Route: 058
     Dates: start: 20020904
  3. IBUPROFEN [Concomitant]
     Indication: PREMEDICATION

REACTIONS (3)
  - VAGINAL OPERATION [None]
  - FATIGUE [None]
  - DEPRESSION [None]
